FAERS Safety Report 8909689 (Version 1)
Quarter: 2012Q4

REPORT INFORMATION
  Report Type: Spontaneous
  Country: US (occurrence: None)
  Receive Date: 20121109
  Receipt Date: 20121109
  Transmission Date: 20130627
  Serious: Yes (Other)
  Sender: FDA-Public Use
  Company Number: E2B_00000434

PATIENT
  Age: 72 Year
  Sex: Male
  Weight: 49.9 kg

DRUGS (3)
  1. QUINAPRIL [Suspect]
     Indication: HYPERTENSION
     Route: 048
     Dates: start: 201207, end: 201210
  2. ATENOLOL [Concomitant]
  3. SIMVASTATIN (SIMVASTATIN) [Concomitant]

REACTIONS (1)
  - Haemorrhage urinary tract [None]
